FAERS Safety Report 13815646 (Version 2)
Quarter: 2017Q3

REPORT INFORMATION
  Report Type: Spontaneous
  Country: PT (occurrence: PT)
  Receive Date: 20170731
  Receipt Date: 20170808
  Transmission Date: 20171127
  Serious: Yes (Hospitalization, Other)
  Sender: FDA-Public Use
  Company Number: PT-MYLANLABS-2017M1047163

PATIENT

DRUGS (9)
  1. LITHIUM. [Suspect]
     Active Substance: LITHIUM
     Indication: PRODUCT USED FOR UNKNOWN INDICATION
  2. CARBIDOPA/LEVODOPA [Suspect]
     Active Substance: CARBIDOPA\LEVODOPA
     Indication: PRODUCT USED FOR UNKNOWN INDICATION
  3. MEMANTINE. [Suspect]
     Active Substance: MEMANTINE
     Indication: PRODUCT USED FOR UNKNOWN INDICATION
  4. AMANTADINE. [Suspect]
     Active Substance: AMANTADINE HYDROCHLORIDE
     Indication: PRODUCT USED FOR UNKNOWN INDICATION
  5. PREGABALIN. [Suspect]
     Active Substance: PREGABALIN
     Indication: PRODUCT USED FOR UNKNOWN INDICATION
  6. CLOZAPINE. [Suspect]
     Active Substance: CLOZAPINE
     Dosage: UNK
  7. ESCITALOPRAM [Suspect]
     Active Substance: ESCITALOPRAM OXALATE
     Indication: PRODUCT USED FOR UNKNOWN INDICATION
  8. ZOTEPINE [Suspect]
     Active Substance: ZOTEPINE
     Indication: PRODUCT USED FOR UNKNOWN INDICATION
  9. CLOZAPINE. [Suspect]
     Active Substance: CLOZAPINE
     Indication: PRODUCT USED FOR UNKNOWN INDICATION
     Dosage: UNK

REACTIONS (12)
  - Hyperhidrosis [Unknown]
  - Pyrexia [Unknown]
  - Renal impairment [Unknown]
  - Coma [Unknown]
  - Antipsychotic drug level above therapeutic [Unknown]
  - Neuroleptic malignant syndrome [Recovering/Resolving]
  - Musculoskeletal stiffness [Recovering/Resolving]
  - Urinary tract infection [Unknown]
  - Rhabdomyolysis [Unknown]
  - Hypertension [Unknown]
  - Hallucination, visual [Unknown]
  - Mutism [Unknown]
